FAERS Safety Report 20778588 (Version 1)
Quarter: 2022Q2

REPORT INFORMATION
  Report Type: Report from Study
  Country: US (occurrence: US)
  Receive Date: 20220503
  Receipt Date: 20220503
  Transmission Date: 20220721
  Serious: Yes (Life-Threatening)
  Sender: FDA-Public Use
  Company Number: US-TAKEDA-2022TUS029425

PATIENT
  Age: 45 Year
  Sex: Female

DRUGS (1)
  1. VORTIOXETINE [Suspect]
     Active Substance: VORTIOXETINE
     Indication: Depression
     Dosage: 20 MILLIGRAM, QD
     Route: 048
     Dates: start: 20201016

REACTIONS (2)
  - Depression [Recovering/Resolving]
  - Therapy interrupted [Recovering/Resolving]

NARRATIVE: CASE EVENT DATE: 20220502
